FAERS Safety Report 25660660 (Version 1)
Quarter: 2025Q3

REPORT INFORMATION
  Report Type: Report from Study
  Country: JP (occurrence: JP)
  Receive Date: 20250808
  Receipt Date: 20250808
  Transmission Date: 20251021
  Serious: Yes (Other)
  Sender: ROCHE
  Company Number: JP-ROCHE-10000267660

PATIENT

DRUGS (2)
  1. ATEZOLIZUMAB [Suspect]
     Active Substance: ATEZOLIZUMAB
     Indication: Hepatocellular carcinoma
     Route: 042
  2. BEVACIZUMAB [Suspect]
     Active Substance: BEVACIZUMAB
     Indication: Hepatocellular carcinoma
     Route: 042

REACTIONS (17)
  - Proteinuria [Unknown]
  - Hypertension [Unknown]
  - Hepatic failure [Unknown]
  - Hypoparathyroidism [Unknown]
  - Interstitial lung disease [Unknown]
  - Gastrointestinal haemorrhage [Unknown]
  - Decreased appetite [Unknown]
  - Fatigue [Unknown]
  - Oral disorder [Unknown]
  - Type 1 diabetes mellitus [Unknown]
  - Diplopia [Unknown]
  - Haemoptysis [Unknown]
  - Rash [Unknown]
  - Lichen planus [Unknown]
  - Inflammation [Unknown]
  - Colitis [Unknown]
  - Adrenal insufficiency [Unknown]
